FAERS Safety Report 8036235-9 (Version None)
Quarter: 2012Q1

REPORT INFORMATION
  Report Type: 
  Country: None (occurrence: None)
  Receive Date: 20120111
  Receipt Date: 20120106
  Transmission Date: 20120608
  Serious: Yes (Other)
  Sender: FDA-Public Use
  Company Number: PHEH2012US000714

PATIENT
  Sex: Male

DRUGS (2)
  1. TEKTURNA [Suspect]
     Dosage: 325 MG, QD
  2. DIOVAN [Suspect]
     Dosage: 320 MG, QD

REACTIONS (2)
  - BLOOD COUNT ABNORMAL [None]
  - ARTERIAL OCCLUSIVE DISEASE [None]
